FAERS Safety Report 8362087-3 (Version None)
Quarter: 2012Q2

REPORT INFORMATION
  Report Type: 
  Country: None (occurrence: None)
  Receive Date: 20120515
  Receipt Date: 20120511
  Transmission Date: 20120825
  Serious: No
  Sender: FDA-Public Use
  Company Number: US-PFIZER INC-2012079440

PATIENT
  Sex: Female
  Weight: 106.58 kg

DRUGS (3)
  1. CHANTIX [Suspect]
     Dosage: UNK
     Route: 048
     Dates: start: 20120322
  2. CHANTIX [Suspect]
     Indication: SMOKING CESSATION THERAPY
     Dosage: 0.5 MG, DAILY
     Route: 048
     Dates: start: 20080101
  3. BENICAR HCT [Concomitant]
     Indication: HYPERTENSION
     Dosage: 20/12.5MG, DAILY
     Route: 048

REACTIONS (1)
  - NO ADVERSE EVENT [None]
